FAERS Safety Report 12963649 (Version 3)
Quarter: 2017Q1

REPORT INFORMATION
  Report Type: Spontaneous
  Country: IL (occurrence: IL)
  Receive Date: 20161122
  Receipt Date: 20170203
  Transmission Date: 20170428
  Serious: Yes (Hospitalization, Other)
  Sender: FDA-Public Use
  Company Number: IL-AMGEN-ISRSP2016162856

PATIENT
  Age: 76 Year
  Sex: Male

DRUGS (1)
  1. ARANESP [Suspect]
     Active Substance: DARBEPOETIN ALFA
     Indication: ANAEMIA
     Dosage: 150 MUG, UNK
     Route: 065

REACTIONS (3)
  - Arterial thrombosis [Recovering/Resolving]
  - Peripheral artery occlusion [Unknown]
  - Peripheral artery stenosis [Unknown]

NARRATIVE: CASE EVENT DATE: 20161109
